FAERS Safety Report 4510394-4 (Version None)
Quarter: 2004Q4

REPORT INFORMATION
  Report Type: 
  Country: None (occurrence: None)
  Receive Date: 20041122
  Receipt Date: 20041105
  Transmission Date: 20050328
  Serious: Yes (Hospitalization)
  Sender: FDA-Public Use
  Company Number: 198115

PATIENT
  Age: 64 Year
  Sex: Male

DRUGS (1)
  1. AVONEX [Suspect]
     Indication: MULTIPLE SCLEROSIS
     Dosage: 30  MCG QW IM
     Route: 030
     Dates: start: 19980101

REACTIONS (6)
  - CIRCULATORY COLLAPSE [None]
  - DYSURIA [None]
  - MICTURITION URGENCY [None]
  - PROSTATECTOMY [None]
  - SPINAL OPERATION [None]
  - URINARY RETENTION [None]
